FAERS Safety Report 18218774 (Version 7)
Quarter: 2021Q1

REPORT INFORMATION
  Report Type: Report from Study
  Country: US (occurrence: US)
  Receive Date: 20200901
  Receipt Date: 20210105
  Transmission Date: 20210419
  Serious: Yes (Other)
  Sender: FDA-Public Use
  Company Number: NVSC2020US240572

PATIENT
  Sex: Female

DRUGS (1)
  1. COSENTYX [Suspect]
     Active Substance: SECUKINUMAB
     Indication: PSORIASIS
     Dosage: UNK
     Route: 058

REACTIONS (6)
  - Arthralgia [Unknown]
  - Inflammation [Unknown]
  - Tendon pain [Unknown]
  - Peripheral swelling [Unknown]
  - Lupus-like syndrome [Unknown]
  - Drug ineffective [Unknown]
